FAERS Safety Report 6180990-X (Version None)
Quarter: 2009Q2

REPORT INFORMATION
  Report Type: 
  Country: None (occurrence: None)
  Receive Date: 20090504
  Receipt Date: 20090504
  Transmission Date: 20091009
  Serious: Yes (Life-Threatening, Hospitalization, Other)
  Sender: FDA-Public Use
  Company Number: None

PATIENT
  Age: 49 Year
  Sex: Male
  Weight: 72 kg

DRUGS (1)
  1. SPRYCEL [Suspect]

REACTIONS (3)
  - ABDOMINAL PAIN [None]
  - PRESYNCOPE [None]
  - PULMONARY ARTERIAL HYPERTENSION [None]
